FAERS Safety Report 24357040 (Version 1)
Quarter: 2024Q3

REPORT INFORMATION
  Report Type: Spontaneous
  Country: US (occurrence: US)
  Receive Date: 20240924
  Receipt Date: 20240924
  Transmission Date: 20241017
  Serious: Yes (Disabling)
  Sender: SANOFI AVENTIS
  Company Number: US-SA-2024SA275239

PATIENT
  Sex: Female

DRUGS (1)
  1. LANTUS SOLOSTAR [Suspect]
     Active Substance: INSULIN GLARGINE
     Indication: Blood glucose increased
     Dosage: 45 U, QD
     Route: 058

REACTIONS (9)
  - Peroneal nerve palsy [Unknown]
  - Dysstasia [Unknown]
  - Gait inability [Unknown]
  - Pain [Unknown]
  - Bladder catheterisation [Unknown]
  - Chromaturia [Unknown]
  - Eating disorder [Unknown]
  - Fluid intake reduced [Unknown]
  - Loss of personal independence in daily activities [Unknown]
